FAERS Safety Report 5737186-2 (Version None)
Quarter: 2008Q2

REPORT INFORMATION
  Report Type: 
  Country: None (occurrence: None)
  Receive Date: 20080514
  Receipt Date: 20080418
  Transmission Date: 20081010
  Serious: Yes (Other)
  Sender: FDA-Public Use
  Company Number: JP-JNJFOC-20080405600

PATIENT
  Age: 65 Year
  Sex: Female

DRUGS (6)
  1. TOPINA [Suspect]
     Indication: PAIN MANAGEMENT
     Route: 048
  2. GABAPENTIN [Concomitant]
     Route: 048
  3. MYSLEE [Concomitant]
     Route: 048
  4. SILECE [Concomitant]
     Route: 048
  5. KAMI-KIHI-TO [Concomitant]
     Route: 048
  6. MOHRUS TAPE [Concomitant]
     Route: 061

REACTIONS (3)
  - COLOUR BLINDNESS [None]
  - CONFUSIONAL STATE [None]
  - HEADACHE [None]
